FAERS Safety Report 15462766 (Version 8)
Quarter: 2021Q2

REPORT INFORMATION
  Report Type: Report from Study
  Country: BR (occurrence: BR)
  Receive Date: 20181004
  Receipt Date: 20210414
  Transmission Date: 20210716
  Serious: Yes (Hospitalization, Other)
  Sender: FDA-Public Use
  Company Number: BR-TAKEDA-2018TUS009074

PATIENT
  Age: 43 Year
  Sex: Female

DRUGS (9)
  1. PANTOZOL [Suspect]
     Active Substance: PANTOPRAZOLE SODIUM
     Indication: GASTROOESOPHAGEAL REFLUX DISEASE
  2. VEDOLIZUMAB [Suspect]
     Active Substance: VEDOLIZUMAB
     Dosage: 300 MILLIGRAM, Q4WEEKS
     Route: 042
     Dates: start: 20190118
  3. PANTOZOL [Suspect]
     Active Substance: PANTOPRAZOLE SODIUM
     Indication: HIATUS HERNIA
     Dosage: 20 MILLIGRAM, QD
     Route: 065
  4. VENLAFAXIN [Concomitant]
     Active Substance: VENLAFAXINE HYDROCHLORIDE
     Indication: DEPRESSION
     Dosage: 75 MILLIGRAM, QD
  5. DULOXETINE. [Concomitant]
     Active Substance: DULOXETINE
     Indication: DEPRESSION
     Dosage: 60 MILLIGRAM, QD
  6. AZATHIOPRINE. [Concomitant]
     Active Substance: AZATHIOPRINE
     Indication: CROHN^S DISEASE
     Dosage: 50 MILLIGRAM, QD
  7. ALLURENE [Concomitant]
     Active Substance: DIENOGEST
     Dosage: 2 MILLIGRAM
  8. TRAMAL [Concomitant]
     Active Substance: TRAMADOL
     Dosage: UNK
     Route: 065
  9. VEDOLIZUMAB [Suspect]
     Active Substance: VEDOLIZUMAB
     Indication: CROHN^S DISEASE
     Dosage: UNK
     Route: 042
     Dates: start: 20180223

REACTIONS (38)
  - Skin discolouration [Unknown]
  - Emotional disorder [Unknown]
  - Fistula [Recovered/Resolved]
  - Headache [Recovered/Resolved]
  - Decreased immune responsiveness [Recovering/Resolving]
  - Oral herpes [Unknown]
  - Dermatitis allergic [Recovering/Resolving]
  - Vomiting [Recovered/Resolved]
  - Nausea [Recovered/Resolved]
  - Off label use [Unknown]
  - Crohn^s disease [Recovering/Resolving]
  - Sciatica [Recovering/Resolving]
  - Abdominal pain [Unknown]
  - Bladder discomfort [Recovering/Resolving]
  - Dyspnoea [Unknown]
  - Oropharyngeal pain [Recovered/Resolved]
  - Fatigue [Recovering/Resolving]
  - Enteritis [Recovered/Resolved]
  - Tremor [Recovering/Resolving]
  - Paraesthesia [Recovered/Resolved]
  - Abdominal adhesions [Recovered/Resolved]
  - Arthralgia [Unknown]
  - Influenza [Recovered/Resolved]
  - Rhinitis [Unknown]
  - Hospitalisation [Unknown]
  - Diarrhoea [Recovered/Resolved]
  - Hypersensitivity [Unknown]
  - Flatulence [Recovering/Resolving]
  - Rash erythematous [Recovering/Resolving]
  - Intestinal perforation [Recovering/Resolving]
  - Feeling abnormal [Recovered/Resolved]
  - Aphthous ulcer [Unknown]
  - Constipation [Recovering/Resolving]
  - Sinusitis [Recovered/Resolved]
  - Hormone level abnormal [Unknown]
  - Cough [Recovered/Resolved]
  - Gastrooesophageal reflux disease [Recovering/Resolving]
  - Hypertension [Not Recovered/Not Resolved]

NARRATIVE: CASE EVENT DATE: 20180226
